FAERS Safety Report 20624458 (Version 1)
Quarter: 2022Q1

REPORT INFORMATION
  Report Type: Spontaneous
  Country: CH (occurrence: CH)
  Receive Date: 20220322
  Receipt Date: 20220322
  Transmission Date: 20220423
  Serious: Yes (Hospitalization, Other)
  Sender: FDA-Public Use
  Company Number: None

PATIENT
  Age: 65 Year
  Sex: Male

DRUGS (27)
  1. XARELTO [Suspect]
     Active Substance: RIVAROXABAN
     Indication: Product used for unknown indication
     Dosage: 15 MG, UNK
     Route: 048
     Dates: start: 20200908, end: 20200911
  2. SINTROM [Interacting]
     Active Substance: ACENOCOUMAROL
     Dates: start: 20211220, end: 20211230
  3. SINTROM [Interacting]
     Active Substance: ACENOCOUMAROL
     Dosage: 1.5 MG, UNK
     Dates: start: 20211231, end: 20211231
  4. SINTROM [Interacting]
     Active Substance: ACENOCOUMAROL
     Dosage: 1 MG, UNK
     Dates: start: 20220101, end: 20220101
  5. SINTROM [Interacting]
     Active Substance: ACENOCOUMAROL
     Dosage: 2 MG, UNK
     Dates: start: 20220102, end: 20220105
  6. SINTROM [Interacting]
     Active Substance: ACENOCOUMAROL
     Dosage: DOSE NOT SPECIFIED
     Dates: start: 20220106, end: 20220116
  7. SINTROM [Interacting]
     Active Substance: ACENOCOUMAROL
     Dosage: 3 MG, UNK
     Dates: start: 20220117, end: 20220117
  8. SINTROM [Interacting]
     Active Substance: ACENOCOUMAROL
     Dosage: 3 MG, UNK
     Dates: start: 20220120, end: 20220120
  9. SINTROM [Interacting]
     Active Substance: ACENOCOUMAROL
     Dosage: 3 MG, UNK
     Dates: start: 20220123, end: 20220123
  10. SINTROM [Interacting]
     Active Substance: ACENOCOUMAROL
     Dosage: 2 MG, UNK
     Dates: start: 20220118, end: 20220119
  11. SINTROM [Interacting]
     Active Substance: ACENOCOUMAROL
     Dosage: 2 MG, UNK
     Dates: start: 20220124, end: 20220124
  12. SINTROM [Interacting]
     Active Substance: ACENOCOUMAROL
     Dates: end: 20211219
  13. ECONAZOLE [Interacting]
     Active Substance: ECONAZOLE
     Indication: Product used for unknown indication
     Route: 061
     Dates: start: 20220124, end: 20220125
  14. ECONAZOLE [Interacting]
     Active Substance: ECONAZOLE
     Dosage: UNK
     Route: 061
     Dates: start: 20211221, end: 20220103
  15. ATORVASTATIN [Concomitant]
     Active Substance: ATORVASTATIN
     Dosage: UNK
     Dates: end: 2020
  16. ATORVASTATIN [Concomitant]
     Active Substance: ATORVASTATIN
     Dosage: UNK
     Dates: start: 20211002
  17. FOLIC ACID [Concomitant]
     Active Substance: FOLIC ACID
     Dates: start: 2020
  18. SODIUM PICOSULFATE [Concomitant]
     Active Substance: SODIUM PICOSULFATE
     Dates: start: 2020
  19. THIAMINE HYDROCHLORIDE [Concomitant]
     Active Substance: THIAMINE HYDROCHLORIDE
     Dates: start: 2020
  20. POLYETHYLENE GLYCOL\POTASSIUM CHLORIDE\SODIUM BICARBONATE\SODIUM CHLOR [Concomitant]
     Active Substance: POLYETHYLENE GLYCOL\POTASSIUM CHLORIDE\SODIUM BICARBONATE\SODIUM CHLORIDE
     Dates: start: 2020
  21. POLYETHYLENE GLYCOL\POTASSIUM CHLORIDE\SODIUM BICARBONATE\SODIUM CHLOR [Concomitant]
     Active Substance: POLYETHYLENE GLYCOL\POTASSIUM CHLORIDE\SODIUM BICARBONATE\SODIUM CHLORIDE
     Dates: start: 20211105
  22. PHOSPHATE [POTASSIUM BICARBONATE;SODIUM PHOSPHATE MONOBASIC] [Concomitant]
     Dates: start: 20211226
  23. METFORMIN HYDROCHLORIDE [Concomitant]
     Active Substance: METFORMIN HYDROCHLORIDE
     Dates: start: 2021
  24. INSULIN GLARGINE [Concomitant]
     Active Substance: INSULIN GLARGINE
     Dates: start: 20211006
  25. INSULIN ASPART [Concomitant]
     Active Substance: INSULIN ASPART
     Dates: start: 20211005
  26. CHOLECALCIFEROL [Concomitant]
     Active Substance: CHOLECALCIFEROL
     Dates: start: 20211109
  27. SODIUM PHOSPHATE [Concomitant]
     Active Substance: SODIUM PHOSPHATE
     Dates: start: 20220111

REACTIONS (4)
  - Anticoagulation drug level above therapeutic [Not Recovered/Not Resolved]
  - Rash [Recovered/Resolved]
  - Pyrexia [Recovered/Resolved]
  - Drug interaction [Not Recovered/Not Resolved]

NARRATIVE: CASE EVENT DATE: 20200909
